FAERS Safety Report 7105880-7 (Version None)
Quarter: 2010Q4

REPORT INFORMATION
  Report Type: 
  Country: None (occurrence: None)
  Receive Date: 20101116
  Receipt Date: 20101110
  Transmission Date: 20110411
  Serious: Yes (Other)
  Sender: FDA-Public Use
  Company Number: A0891358A

PATIENT
  Age: 64 Year
  Sex: Male

DRUGS (4)
  1. PROMACTA [Suspect]
     Dates: start: 20090608
  2. CORTICOSTEROIDS [Concomitant]
  3. IMMUNE GLOBULIN INTRAVENOUS (HUMAN) [Concomitant]
  4. TYLENOL [Concomitant]

REACTIONS (2)
  - FATIGUE [None]
  - LIVER FUNCTION TEST ABNORMAL [None]
